FAERS Safety Report 6503860-3 (Version None)
Quarter: 2009Q4

REPORT INFORMATION
  Report Type: 
  Country: None (occurrence: None)
  Receive Date: 20091217
  Receipt Date: 20091209
  Transmission Date: 20100525
  Serious: Yes (Other)
  Sender: FDA-Public Use
  Company Number: B0607006A

PATIENT
  Sex: Male

DRUGS (7)
  1. AROPAX [Suspect]
     Indication: DRUG USE FOR UNKNOWN INDICATION
     Dosage: 20MG IN THE MORNING
     Route: 065
  2. CHAMPIX [Suspect]
     Indication: DRUG USE FOR UNKNOWN INDICATION
     Dosage: 1MG TWICE PER DAY
     Route: 065
     Dates: start: 20091103
  3. MOTILIUM [Concomitant]
     Dosage: 10MG FOUR TIMES PER DAY
  4. DIAZEPAM [Concomitant]
  5. MINIPRESS [Concomitant]
     Dosage: 2MG TWICE PER DAY
  6. OXYCONTIN [Concomitant]
     Dosage: 60MG TWICE PER DAY
     Route: 065
  7. DIAZEPAM [Concomitant]
     Route: 065

REACTIONS (3)
  - DRUG INTERACTION [None]
  - NAUSEA [None]
  - TREMOR [None]
